FAERS Safety Report 9137154 (Version 1)
Quarter: 2013Q1

REPORT INFORMATION
  Report Type: Spontaneous
  Country: US (occurrence: US)
  Receive Date: 20130304
  Receipt Date: 20130304
  Transmission Date: 20140127
  Serious: No
  Sender: FDA-Public Use
  Company Number: US-ASTRAZENECA-2013SE05927

PATIENT
  Sex: Male

DRUGS (3)
  1. SYMBICORT [Suspect]
     Indication: ASTHMA
     Dosage: 2 PUFFS BID
     Route: 055
  2. PROVENTIL [Concomitant]
     Indication: PROPHYLAXIS
     Route: 055
  3. ADAVIR [Concomitant]

REACTIONS (5)
  - Influenza [Unknown]
  - Throat irritation [Unknown]
  - Cough [Unknown]
  - Off label use [Unknown]
  - Intentional drug misuse [Unknown]
